FAERS Safety Report 5015384-3 (Version None)
Quarter: 2006Q2

REPORT INFORMATION
  Report Type: 
  Country: None (occurrence: None)
  Receive Date: 20060601
  Receipt Date: 20060523
  Transmission Date: 20061013
  Serious: Yes (Hospitalization)
  Sender: FDA-Public Use
  Company Number: US-JNJFOC-20060505214

PATIENT
  Sex: Male
  Weight: 42.64 kg

DRUGS (6)
  1. CONCERTA [Suspect]
     Indication: ATTENTION DEFICIT/HYPERACTIVITY DISORDER
     Route: 048
  2. ADDERALL 10 [Suspect]
     Route: 048
  3. ADDERALL 10 [Suspect]
     Route: 048
  4. ADDERALL 10 [Suspect]
     Route: 048
  5. ADDERALL 10 [Suspect]
     Indication: DRUG USE FOR UNKNOWN INDICATION
     Route: 048
  6. ALBUTEROL SULFATE AUTOHALER [Concomitant]

REACTIONS (1)
  - BRAIN NEOPLASM [None]
